FAERS Safety Report 4903956-3 (Version None)
Quarter: 2006Q1

REPORT INFORMATION
  Report Type: 
  Country: None (occurrence: None)
  Receive Date: 20060208
  Receipt Date: 20050802
  Transmission Date: 20060701
  Serious: No
  Sender: FDA-Public Use
  Company Number: US-GLAXOSMITHKLINE-A0568620A

PATIENT
  Age: 55 Year
  Sex: Female

DRUGS (2)
  1. PAROXETINE HCL [Suspect]
     Dosage: 30MG PER DAY
     Route: 048
     Dates: start: 20050726
  2. NO CONCURRENT MEDICATION [Concomitant]

REACTIONS (4)
  - EMOTIONAL DISORDER [None]
  - FLAT AFFECT [None]
  - HEADACHE [None]
  - VISION BLURRED [None]
